FAERS Safety Report 17960119 (Version 5)
Quarter: 2023Q1

REPORT INFORMATION
  Report Type: Report from Study
  Country: US (occurrence: None)
  Receive Date: 20200630
  Receipt Date: 20230110
  Transmission Date: 20230417
  Serious: Yes (Other)
  Sender: FDA-Public Use
  Company Number: US-ROCHE-2579954

PATIENT
  Age: 59 Year
  Sex: Female
  Weight: 52.2 kg

DRUGS (5)
  1. COBIMETINIB [Suspect]
     Active Substance: COBIMETINIB
     Indication: Lung adenocarcinoma
     Dosage: 60 MG PO DAILY ON DAYS 1-21, CYCLES REPEAT EVERY 28 DAYS ?LAST DOSE: 11/FEB/2020
     Route: 048
     Dates: start: 20200128
  2. COBIMETINIB [Suspect]
     Active Substance: COBIMETINIB
     Route: 048
     Dates: start: 20200128
  3. COBIMETINIB [Suspect]
     Active Substance: COBIMETINIB
     Route: 048
  4. ATEZOLIZUMAB [Suspect]
     Active Substance: ATEZOLIZUMAB
     Indication: Lung adenocarcinoma
     Dosage: OVER 60 MINUTES ON DAYS 1 AND 15. 1680 MG, LAST ADMINISTERED DATE: 11/FEB/2020
     Route: 041
     Dates: start: 20200128
  5. ATEZOLIZUMAB [Suspect]
     Active Substance: ATEZOLIZUMAB
     Route: 041

REACTIONS (2)
  - Ejection fraction decreased [Unknown]
  - Dermatitis acneiform [Recovered/Resolved]

NARRATIVE: CASE EVENT DATE: 20200211
